FAERS Safety Report 19641555 (Version 1)
Quarter: 2021Q3

REPORT INFORMATION
  Report Type: Report from Study
  Country: None (occurrence: TW)
  Receive Date: 20210731
  Receipt Date: 20210731
  Transmission Date: 20211014
  Serious: Yes (Hospitalization)
  Sender: FDA-Public Use
  Company Number: TW-ABBVIE-21K-153-4012074-00

PATIENT
  Age: 50 Year
  Sex: Male
  Weight: 88 kg

DRUGS (5)
  1. HUMIRA [Suspect]
     Active Substance: ADALIMUMAB
     Indication: CROHN^S DISEASE
     Route: 058
     Dates: start: 20191022
  2. FLUMARIN [FLUCONAZOLE] [Suspect]
     Active Substance: FLUCONAZOLE
     Indication: ABSCESS
  3. PREDNISOLONE. [Concomitant]
     Active Substance: PREDNISOLONE
     Indication: CROHN^S DISEASE
     Route: 048
     Dates: start: 20210630, end: 20210723
  4. FLUMARIN [FLUCONAZOLE] [Suspect]
     Active Substance: FLUCONAZOLE
     Indication: LARGE INTESTINE INFECTION
     Route: 041
     Dates: start: 20210630, end: 20210701
  5. FLUMARIN [FLUCONAZOLE] [Suspect]
     Active Substance: FLUCONAZOLE
     Indication: PERITONITIS

REACTIONS (11)
  - White blood cell count increased [Unknown]
  - Peritonitis [Recovering/Resolving]
  - Small intestinal perforation [Unknown]
  - Tissue infiltration [Unknown]
  - C-reactive protein increased [Unknown]
  - Abscess intestinal [Recovering/Resolving]
  - Asthenia [Unknown]
  - Large intestine infection [Recovering/Resolving]
  - Chills [Unknown]
  - Intestinal polyp [Unknown]
  - Discomfort [Unknown]

NARRATIVE: CASE EVENT DATE: 20210630
